FAERS Safety Report 8790338 (Version 1)
Quarter: 2012Q4

REPORT INFORMATION
  Report Type: 
  Country: US (occurrence: US)
  Receive Date: 20120917
  Receipt Date: 20120917
  Transmission Date: 20130627
  Serious: Yes (Other)
  Sender: FDA-Public Use
  Company Number: US-AMGEN-USASP2012057669

PATIENT
  Sex: Male

DRUGS (1)
  1. XGEVA [Suspect]
     Indication: PROPHYLAXIS
     Dosage: UNK
     Dates: start: 201111

REACTIONS (3)
  - Osteonecrosis of jaw [Not Recovered/Not Resolved]
  - Post procedural infection [Not Recovered/Not Resolved]
  - Post procedural swelling [Not Recovered/Not Resolved]
